FAERS Safety Report 15587120 (Version 1)
Quarter: 2018Q4

REPORT INFORMATION
  Report Type: Spontaneous
  Country: JP (occurrence: JP)
  Receive Date: 20181105
  Receipt Date: 20181105
  Transmission Date: 20190205
  Serious: Yes (Hospitalization, Other)
  Sender: FDA-Public Use
  Company Number: JP-GLAXOSMITHKLINE-JP2018JPN197119

PATIENT
  Age: 37 Year
  Sex: Female

DRUGS (2)
  1. FLOLAN [Suspect]
     Active Substance: EPOPROSTENOL SODIUM
     Dosage: 86 NG/KG/MIN, UNK
     Route: 042
  2. FLOLAN [Suspect]
     Active Substance: EPOPROSTENOL SODIUM
     Indication: PULMONARY ARTERIAL HYPERTENSION
     Dosage: UNK
     Route: 042

REACTIONS (6)
  - Mediastinal abscess [Recovered/Resolved]
  - Device related infection [Unknown]
  - Catheter site injury [Unknown]
  - Mediastinal haematoma [Unknown]
  - Thrombosis [Unknown]
  - Vascular occlusion [Unknown]
